FAERS Safety Report 10643622 (Version 1)
Quarter: 2014Q4

REPORT INFORMATION
  Report Type: Spontaneous
  Country: US (occurrence: US)
  Receive Date: 20141210
  Receipt Date: 20141210
  Transmission Date: 20150529
  Serious: Yes (Hospitalization)
  Sender: FDA-Public Use
  Company Number: US-PERRIGO-14US011924

PATIENT
  Sex: Female

DRUGS (1)
  1. EQUALINE NIGHTTIME SEVERE COLD AND FLU [Suspect]
     Active Substance: ACETAMINOPHEN\DEXTROMETHORPHAN HYDROBROMIDE\DOXYLAMINE SUCCINATE\PHENYLEPHRINE HYDROCHLORIDE
     Indication: NASOPHARYNGITIS
     Dosage: 3/4 DOSING CUP, SINGLE AT 2230
     Route: 048
     Dates: start: 20141128, end: 20141128

REACTIONS (5)
  - Drug effect delayed [Recovered/Resolved]
  - Somnolence [Recovered/Resolved]
  - Amnesia [Recovered/Resolved]
  - Loss of consciousness [Recovered/Resolved]
  - Underdose [Recovered/Resolved]

NARRATIVE: CASE EVENT DATE: 20141128
